FAERS Safety Report 22140397 (Version 1)
Quarter: 2023Q1

REPORT INFORMATION
  Report Type: Spontaneous
  Country: US (occurrence: None)
  Receive Date: 20230324
  Receipt Date: 20230324
  Transmission Date: 20230417
  Serious: Yes (Other)
  Sender: FDA-Public Use
  Company Number: None

PATIENT
  Age: 84 Year
  Sex: Female
  Weight: 72 kg

DRUGS (9)
  1. RIVASTIGMINE TRANSDERMAL SYSTEM [Suspect]
     Active Substance: RIVASTIGMINE
     Indication: Dementia Alzheimer^s type
     Dosage: OTHER QUANTITY : 1 PATCH(ES);?
     Route: 062
     Dates: start: 20230312, end: 20230324
  2. ATORVASTATIN [Concomitant]
     Active Substance: ATORVASTATIN
  3. metoprolol succinate-XL 25 mg 24 hour tablet [Concomitant]
  4. SERTRALINE HYDROCHLORIDE [Concomitant]
     Active Substance: SERTRALINE HYDROCHLORIDE
  5. Preservision AREDS tabs [Concomitant]
  6. CALCIUM\VITAMIN D [Concomitant]
     Active Substance: CALCIUM\VITAMIN D
  7. FISH OIL [Concomitant]
  8. One-a-day multivitamin [Concomitant]
  9. ASPIRIN [Concomitant]
     Active Substance: ASPIRIN

REACTIONS (5)
  - Nightmare [None]
  - Tremor [None]
  - Tremor [None]
  - Fear-related avoidance of activities [None]
  - Suicidal ideation [None]

NARRATIVE: CASE EVENT DATE: 20230324
